FAERS Safety Report 7542860-1 (Version None)
Quarter: 2011Q2

REPORT INFORMATION
  Report Type: 
  Country: None (occurrence: None)
  Receive Date: 20110613
  Receipt Date: 20110606
  Transmission Date: 20111010
  Serious: Yes (Hospitalization, Other)
  Sender: FDA-Public Use
  Company Number: US-PFIZER INC-2011108599

PATIENT
  Sex: Female
  Weight: 45 kg

DRUGS (13)
  1. SODIUM BICARBONATE [Concomitant]
     Dosage: 650 MG, 3X/DAY
  2. CALCITRIOL [Concomitant]
     Dosage: 2.5 MG, 3X/WEEK
  3. AMLODIPINE [Concomitant]
     Dosage: ONE TABLET IN MORNING, 1/2 TABLET AT NIGHT
  4. PRAVASTATIN [Concomitant]
     Dosage: 10 MG, 1X/DAY
  5. GLUCOSAMINE [Concomitant]
     Indication: ARTHRITIS
     Dosage: 1500 MG, 1X/DAY
  6. XALATAN [Suspect]
     Indication: MACULAR DEGENERATION
     Dosage: ONE DROP IN RIGHT EYE
     Route: 047
  7. LISINOPRIL [Concomitant]
     Dosage: 1 MG, 1X/DAY
  8. XALATAN [Suspect]
     Indication: INTRAOCULAR PRESSURE INCREASED
  9. CITALOPRAM [Concomitant]
     Dosage: 20 MG, 1X/DAY
  10. VITAMIN-MINERAL COMPOUND TAB [Concomitant]
     Dosage: UNK
  11. VITAMIN B-12 [Concomitant]
     Dosage: 1000 MG, UNK
  12. ASCORBIC ACID [Concomitant]
     Dosage: 5 MG, UNK
  13. VITAMIN D [Concomitant]
     Dosage: 1 DF, UNK

REACTIONS (3)
  - BREAST CANCER [None]
  - RENAL DISORDER [None]
  - NEOPLASM MALIGNANT [None]
